FAERS Safety Report 9772106 (Version 2)
Quarter: 2014Q1

REPORT INFORMATION
  Report Type: Spontaneous
  Country: US (occurrence: US)
  Receive Date: 20131219
  Receipt Date: 20140110
  Transmission Date: 20141002
  Serious: Yes (Other)
  Sender: FDA-Public Use
  Company Number: US-JNJFOC-20131207421

PATIENT
  Sex: Male

DRUGS (4)
  1. NUCYNTA [Suspect]
     Indication: PROCEDURAL PAIN
     Dosage: THRICE DAILY
     Route: 048
     Dates: start: 2013
  2. ZOFRAN [Suspect]
     Indication: NAUSEA
     Dosage: THRICE DAILY
     Route: 065
     Dates: start: 2013
  3. DICYCLOMINE [Suspect]
     Indication: PRODUCT USED FOR UNKNOWN INDICATION
     Dosage: THRICE DAILY
     Route: 065
     Dates: start: 2013
  4. AMBIEN [Interacting]
     Indication: PRODUCT USED FOR UNKNOWN INDICATION
     Route: 065

REACTIONS (5)
  - Complex regional pain syndrome [Not Recovered/Not Resolved]
  - Nausea [Not Recovered/Not Resolved]
  - Abdominal pain upper [Not Recovered/Not Resolved]
  - Drug interaction [Unknown]
  - Adverse event [Unknown]
